FAERS Safety Report 9024746 (Version 2)
Quarter: 2013Q2

REPORT INFORMATION
  Report Type: Spontaneous
  Country: US (occurrence: None)
  Receive Date: 20121231
  Receipt Date: 20130605
  Transmission Date: 20140414
  Serious: Yes (Other)
  Sender: FDA-Public Use
  Company Number: ADR-2012-02310

PATIENT
  Age: 53 Year
  Sex: Male

DRUGS (4)
  1. BACLOFEN INTRATHECAL [Suspect]
     Indication: PAIN
  2. DILAUDID (HYDROMORPHONE) [Concomitant]
  3. FENTANYL [Concomitant]
  4. BUPIVACAINE [Concomitant]

REACTIONS (11)
  - Device issue [None]
  - Device alarm issue [None]
  - Drug withdrawal syndrome [None]
  - Nasopharyngitis [None]
  - Hypoaesthesia [None]
  - Chills [None]
  - Headache [None]
  - Asthenia [None]
  - Weight decreased [None]
  - Drug administration error [None]
  - Pain [None]
